FAERS Safety Report 22193131 (Version 3)
Quarter: 2023Q2

REPORT INFORMATION
  Report Type: Report from Study
  Country: AU (occurrence: None)
  Receive Date: 20230410
  Receipt Date: 20230501
  Transmission Date: 20230722
  Serious: Yes (Hospitalization, Other)
  Sender: FDA-Public Use
  Company Number: AU-Merck Healthcare KGaA-9390898

PATIENT
  Age: 33 Year
  Sex: Female

DRUGS (1)
  1. MAVENCLAD [Suspect]
     Active Substance: CLADRIBINE
     Indication: Multiple sclerosis
     Dosage: YEAR ONE WEEK ONE THERAPY.
     Route: 048
     Dates: start: 20230306, end: 20230310

REACTIONS (17)
  - Cardiac dysfunction [Unknown]
  - Panic attack [Unknown]
  - Headache [Recovering/Resolving]
  - Multiple sclerosis [Unknown]
  - Eye pain [Unknown]
  - Optic neuritis [Recovering/Resolving]
  - Eczema [Unknown]
  - Skin laxity [Unknown]
  - Renal pain [Unknown]
  - Diarrhoea [Unknown]
  - Gastrointestinal disorder [Unknown]
  - Rhinalgia [Unknown]
  - Rash [Unknown]
  - Fatigue [Not Recovered/Not Resolved]
  - Pain [Unknown]
  - Depression [Unknown]
  - Feeling abnormal [Unknown]

NARRATIVE: CASE EVENT DATE: 20230307
